FAERS Safety Report 15717178 (Version 2)
Quarter: 2018Q4

REPORT INFORMATION
  Report Type: Spontaneous
  Country: GR (occurrence: GR)
  Receive Date: 20181213
  Receipt Date: 20181228
  Transmission Date: 20190205
  Serious: Yes (Hospitalization, Other)
  Sender: FDA-Public Use
  Company Number: GR-ROCHE-2228576

PATIENT
  Age: 19 Year
  Sex: Male

DRUGS (1)
  1. ACTILYSE [Suspect]
     Active Substance: ALTEPLASE
     Indication: PULMONARY ARTERY THROMBOSIS
     Route: 065

REACTIONS (2)
  - Syncope [Recovered/Resolved]
  - Drug ineffective [Unknown]
